FAERS Safety Report 20610773 (Version 1)
Quarter: 2022Q1

REPORT INFORMATION
  Report Type: Spontaneous
  Country: US (occurrence: None)
  Receive Date: 20220317
  Receipt Date: 20220317
  Transmission Date: 20220424
  Serious: No
  Sender: FDA-Public Use
  Company Number: None

PATIENT
  Sex: Female

DRUGS (1)
  1. RETACRIT [Suspect]
     Active Substance: EPOETIN ALFA-EPBX
     Indication: Myelodysplastic syndrome
     Dosage: FREQUENCY : WEEKLY;?OTHER ROUTE : UNDER THE SKIN;?
     Route: 050
     Dates: start: 20220104

REACTIONS (1)
  - Hypersensitivity [None]
